FAERS Safety Report 19151565 (Version 2)
Quarter: 2023Q2

REPORT INFORMATION
  Report Type: Spontaneous
  Country: US (occurrence: US)
  Receive Date: 20210419
  Receipt Date: 20230515
  Transmission Date: 20230722
  Serious: No
  Sender: FDA-Public Use
  Company Number: US-UCBSA-2020030992

PATIENT
  Sex: Male

DRUGS (3)
  1. NEUPRO [Suspect]
     Active Substance: ROTIGOTINE
     Indication: Product used for unknown indication
     Dosage: NEUPRO 2 MG
  2. NEUPRO [Suspect]
     Active Substance: ROTIGOTINE
     Dosage: NEUPRO 4 MG
  3. NEUPRO [Suspect]
     Active Substance: ROTIGOTINE
     Dosage: NEUPRO 6 MG

REACTIONS (1)
  - Ear discomfort [Unknown]
